FAERS Safety Report 6255172-3 (Version None)
Quarter: 2009Q3

REPORT INFORMATION
  Report Type: 
  Country: None (occurrence: None)
  Receive Date: 20090702
  Receipt Date: 20090625
  Transmission Date: 20100115
  Serious: Yes (Other)
  Sender: FDA-Public Use
  Company Number: PHEH2009US06347

PATIENT
  Sex: Female

DRUGS (13)
  1. RECLAST [Suspect]
     Dosage: UNK, UNK
     Dates: start: 20070101
  2. RECLAST [Suspect]
     Dosage: UNK
     Dates: start: 20090219, end: 20090219
  3. CALCIUM [Concomitant]
     Dosage: 400 MG, UNK
  4. VITAMIN D [Concomitant]
     Dosage: 500 IU, UNK
  5. CITRACAL [Concomitant]
  6. MECLIZINE [Concomitant]
     Dosage: 25 MG, UNK
  7. ASPIRIN [Concomitant]
  8. FUROSEMIDE INTENSOL [Concomitant]
     Dosage: 20 MG, UNK
  9. SYNTHROID [Concomitant]
     Dosage: 50 MG, UNK
  10. DIOVAN [Concomitant]
     Dosage: 160 MG, UNK
  11. CLORAZEPATE DIPOTASSIUM [Concomitant]
     Dosage: 7.5 MG, UNK
  12. CITRUCEL [Concomitant]
  13. VITAMINS [Concomitant]

REACTIONS (2)
  - DIZZINESS [None]
  - MOVEMENT DISORDER [None]
